FAERS Safety Report 9846290 (Version 4)
Quarter: 2014Q4

REPORT INFORMATION
  Report Type: Report from Study
  Country: US (occurrence: US)
  Receive Date: 20140127
  Receipt Date: 20141222
  Transmission Date: 20150529
  Serious: Yes (Life-Threatening, Hospitalization)
  Sender: FDA-Public Use
  Company Number: US-SA-2014SA007689

PATIENT
  Age: 52 Year
  Sex: Female

DRUGS (4)
  1. GABAPENTIN. [Concomitant]
     Active Substance: GABAPENTIN
  2. CALCIUM [Concomitant]
     Active Substance: CALCIUM
  3. LYRICA [Concomitant]
     Active Substance: PREGABALIN
  4. AUBAGIO [Suspect]
     Active Substance: TERIFLUNOMIDE
     Indication: MULTIPLE SCLEROSIS
     Route: 048
     Dates: start: 20130823

REACTIONS (2)
  - Fall [Unknown]
  - Adverse event [Recovering/Resolving]
